FAERS Safety Report 5023616-0 (Version None)
Quarter: 2006Q2

REPORT INFORMATION
  Report Type: 
  Country: None (occurrence: None)
  Receive Date: 20060606
  Receipt Date: 20060522
  Transmission Date: 20061013
  Serious: Yes (Hospitalization)
  Sender: FDA-Public Use
  Company Number: SUSI-2006-00548

PATIENT
  Age: 21 Year
  Sex: Male

DRUGS (3)
  1. PENTASA [Suspect]
     Indication: COLITIS ULCERATIVE
     Dosage: 1500 MG DAILY, ORAL
     Route: 048
     Dates: start: 20020101, end: 20051114
  2. URSO  /02213401/(THIAMINE HYDROCHLORIDE, RIBOFLAVIN, URSODEOXYCHOLIC A [Suspect]
     Indication: CHOLANGITIS
     Dosage: 600 MG DAILY, ORAL
     Route: 048
     Dates: start: 20020101, end: 20051109
  3. URSO  /02213401/(THIAMINE HYDROCHLORIDE, RIBOFLAVIN, URSODEOXYCHOLIC A [Suspect]
     Indication: CHOLANGITIS
     Dosage: 600 MG DAILY, ORAL
     Route: 048
     Dates: start: 20051216

REACTIONS (1)
  - EOSINOPHILIC PNEUMONIA [None]
